FAERS Safety Report 21443168 (Version 1)
Quarter: 2022Q4

REPORT INFORMATION
  Report Type: Spontaneous
  Country: FR (occurrence: FR)
  Receive Date: 20221012
  Receipt Date: 20221012
  Transmission Date: 20230113
  Serious: Yes (Hospitalization, Other)
  Sender: FDA-Public Use
  Company Number: FR-AFSSAPS-GR20222125

PATIENT
  Age: 64 Year
  Sex: Female
  Weight: 49 kg

DRUGS (1)
  1. AMOXICILLIN [Suspect]
     Active Substance: AMOXICILLIN
     Indication: Infection
     Dosage: NP
     Route: 048
     Dates: start: 20201222, end: 20201222

REACTIONS (3)
  - Anaphylactic reaction [Recovered/Resolved]
  - Skin test positive [Recovered/Resolved]
  - Cross sensitivity reaction [Recovered/Resolved]

NARRATIVE: CASE EVENT DATE: 20201222
